FAERS Safety Report 6622589-4 (Version None)
Quarter: 2010Q1

REPORT INFORMATION
  Report Type: 
  Country: None (occurrence: None)
  Receive Date: 20100310
  Receipt Date: 20100113
  Transmission Date: 20100710
  Serious: No
  Sender: FDA-Public Use
  Company Number: US-BIOGENIDEC-2010BI001319

PATIENT
  Age: 47 Year
  Sex: Female

DRUGS (2)
  1. AVONEX [Suspect]
     Indication: MULTIPLE SCLEROSIS
     Route: 030
     Dates: start: 20010401
  2. AVONEX [Suspect]
     Route: 030

REACTIONS (6)
  - ARTHRALGIA [None]
  - ARTHRITIS [None]
  - FALL [None]
  - JOINT INJURY [None]
  - JOINT WARMTH [None]
  - MENISCUS LESION [None]
